FAERS Safety Report 24190059 (Version 1)
Quarter: 2024Q3

REPORT INFORMATION
  Report Type: Spontaneous
  Country: US (occurrence: None)
  Receive Date: 20240807
  Receipt Date: 20240807
  Transmission Date: 20241017
  Serious: No
  Sender: Public
  Company Number: None

PATIENT
  Age: 82 Year
  Sex: Female
  Weight: 67.7 kg

DRUGS (2)
  1. ATEZOLIZUMAB\HYALURONIDASE-TQJS [Suspect]
     Active Substance: ATEZOLIZUMAB\HYALURONIDASE-TQJS
     Indication: Non-small cell lung cancer
     Dosage: 1875 MG/ML EVERY 3 WEEKS SUBCUTANEOUS?
     Route: 058
  2. FLEXERIL [Concomitant]
     Active Substance: CYCLOBENZAPRINE HYDROCHLORIDE

REACTIONS (9)
  - Back pain [None]
  - Muscle spasms [None]
  - Nausea [None]
  - Spinal fracture [None]
  - Spondylolysis [None]
  - Stenosis [None]
  - Muscle atrophy [None]
  - Spondylolisthesis [None]
  - Diverticulum intestinal [None]

NARRATIVE: CASE EVENT DATE: 20240719
